FAERS Safety Report 6784546-7 (Version None)
Quarter: 2010Q2

REPORT INFORMATION
  Report Type: 
  Country: None (occurrence: None)
  Receive Date: 20100622
  Receipt Date: 20100611
  Transmission Date: 20101027
  Serious: Yes (Hospitalization)
  Sender: FDA-Public Use
  Company Number: JP-ROCHE-710356

PATIENT
  Sex: Female
  Weight: 52 kg

DRUGS (16)
  1. TOCILIZUMAB [Suspect]
     Indication: RHEUMATOID ARTHRITIS
     Route: 041
     Dates: start: 20091026, end: 20091026
  2. TOCILIZUMAB [Suspect]
     Route: 041
     Dates: start: 20091120, end: 20091120
  3. TOCILIZUMAB [Suspect]
     Route: 041
     Dates: start: 20091218, end: 20091218
  4. TOCILIZUMAB [Suspect]
     Route: 041
     Dates: start: 20100226, end: 20100226
  5. TOCILIZUMAB [Suspect]
     Route: 041
     Dates: start: 20100326, end: 20100326
  6. TOCILIZUMAB [Suspect]
     Route: 041
     Dates: start: 20100426, end: 20100426
  7. TOCILIZUMAB [Suspect]
     Route: 041
     Dates: start: 20100524
  8. RIMATIL [Concomitant]
     Route: 048
  9. PREDNISOLONE [Concomitant]
     Dosage: FORM: PERORAL AGENT
     Route: 048
  10. ROCALTROL [Concomitant]
     Route: 048
  11. TAKEPRON [Concomitant]
     Dosage: FORM: PERORAL AGENT
     Route: 048
  12. NORVASC [Concomitant]
     Route: 048
  13. BONALON [Concomitant]
     Route: 048
  14. VOLTAREN [Concomitant]
     Route: 054
  15. MEVALOTIN [Concomitant]
     Dosage: FORM: PERORAL AGENT
     Route: 048
     Dates: start: 20091201, end: 20091215
  16. LIPITOR [Concomitant]
     Route: 048
     Dates: start: 20091216

REACTIONS (5)
  - BLOOD CHOLESTEROL INCREASED [None]
  - BLOOD TRIGLYCERIDES INCREASED [None]
  - FEMORAL NECK FRACTURE [None]
  - HYPERCHOLESTEROLAEMIA [None]
  - HYPERTRIGLYCERIDAEMIA [None]
